FAERS Safety Report 8793225 (Version 1)
Quarter: 2012Q4

REPORT INFORMATION
  Report Type: 
  Country: None (occurrence: BE)
  Receive Date: 20120917
  Receipt Date: 20120917
  Transmission Date: 20130627
  Serious: Yes (Other)
  Sender: FDA-Public Use
  Company Number: BE-ABBOTT-11P-013-0729440-00

PATIENT
  Age: 32 Year
  Sex: Male
  Weight: 65 kg

DRUGS (4)
  1. HUMIRA 40 MG/ 0.8 ML PRE-FILLED SYRINGE [Suspect]
     Indication: CROHN^S DISEASE
     Route: 058
     Dates: start: 20101225, end: 20110501
  2. HUMIRA 40 MG/ 0.8 ML PRE-FILLED SYRINGE [Suspect]
     Indication: PSORIASIS
  3. IMURAN [Concomitant]
     Indication: CROHN^S DISEASE
     Dosage: 150mg daily
     Route: 048
     Dates: start: 2003, end: 20110518
  4. SALAZOPYRINE [Concomitant]
     Indication: PRODUCT USED FOR UNKNOWN INDICATION

REACTIONS (3)
  - Immune reconstitution inflammatory syndrome [Recovering/Resolving]
  - Disseminated tuberculosis [Recovering/Resolving]
  - Tuberculosis [Unknown]
